FAERS Safety Report 6164109-7 (Version None)
Quarter: 2009Q2

REPORT INFORMATION
  Report Type: 
  Country: None (occurrence: None)
  Receive Date: 20090422
  Receipt Date: 20090417
  Transmission Date: 20091009
  Serious: Yes (Life-Threatening, Other)
  Sender: FDA-Public Use
  Company Number: B0568863A

PATIENT
  Sex: Female
  Weight: 55 kg

DRUGS (4)
  1. ZANTAC [Suspect]
     Indication: PREMEDICATION
     Dosage: 50MG PER DAY
     Route: 042
     Dates: start: 20090305, end: 20090305
  2. SEROTONE [Suspect]
     Indication: PREMEDICATION
     Dosage: 10MG PER DAY
     Route: 042
     Dates: start: 20090305, end: 20090305
  3. DECADRON [Suspect]
     Indication: PREMEDICATION
     Dosage: 20MG PER DAY
     Route: 042
     Dates: start: 20090305, end: 20090305
  4. UNKNOWN DRUG [Concomitant]
     Indication: DRUG USE FOR UNKNOWN INDICATION
     Dosage: 100ML PER DAY
     Route: 042

REACTIONS (6)
  - ANAPHYLACTIC SHOCK [None]
  - BLOOD PRESSURE DECREASED [None]
  - CYANOSIS [None]
  - DYSPNOEA [None]
  - FLUSHING [None]
  - HOT FLUSH [None]
